FAERS Safety Report 14580311 (Version 1)
Quarter: 2018Q1

REPORT INFORMATION
  Report Type: Spontaneous
  Country: JP (occurrence: JP)
  Receive Date: 20180228
  Receipt Date: 20180228
  Transmission Date: 20180509
  Serious: Yes (Other)
  Sender: FDA-Public Use
  Company Number: JP-BRISTOL-MYERS SQUIBB COMPANY-BMS-2018-015730

PATIENT
  Sex: Female

DRUGS (2)
  1. DEXALTIN [Concomitant]
     Active Substance: DEXAMETHASONE
     Indication: GINGIVITIS
     Dosage: UNK
     Route: 065
  2. KENALOG IN ORABASE [Suspect]
     Active Substance: TRIAMCINOLONE ACETONIDE
     Indication: GINGIVITIS
     Dosage: UNK
     Route: 065

REACTIONS (2)
  - Haemorrhage [Unknown]
  - Pain [Unknown]

NARRATIVE: CASE EVENT DATE: 20180216
